FAERS Safety Report 19231038 (Version 1)
Quarter: 2021Q2

REPORT INFORMATION
  Report Type: Spontaneous
  Country: US (occurrence: US)
  Receive Date: 20210507
  Receipt Date: 20210507
  Transmission Date: 20210717
  Serious: No
  Sender: FDA-Public Use
  Company Number: None

PATIENT

DRUGS (5)
  1. FENTANYL TRANSDERMAL SYSTEM [Suspect]
     Active Substance: FENTANYL
     Indication: ARTHRITIS
     Dosage: ?          QUANTITY:10 PATCHES?FREQUENCY: APPLY 1 PATCH ONTO THE SKIN EVERY 72 HOURS?
     Route: 061
     Dates: start: 20140101
  2. FENTANYL TRANSDERMAL SYSTEM [Suspect]
     Active Substance: FENTANYL
     Indication: FIBROMYALGIA
     Dosage: ?          QUANTITY:10 PATCHES?FREQUENCY: APPLY 1 PATCH ONTO THE SKIN EVERY 72 HOURS?
     Route: 061
     Dates: start: 20140101
  3. FENTANYL TRANSDERMAL SYSTEM [Suspect]
     Active Substance: FENTANYL
     Indication: INTERVERTEBRAL DISC DEGENERATION
     Dosage: ?          QUANTITY:10 PATCHES?FREQUENCY: APPLY 1 PATCH ONTO THE SKIN EVERY 72 HOURS?
     Route: 061
     Dates: start: 20140101
  4. FENTANYL TRANSDERMAL SYSTEM [Suspect]
     Active Substance: FENTANYL
     Indication: PAIN
     Dosage: ?          QUANTITY:10 PATCHES?FREQUENCY: APPLY 1 PATCH ONTO THE SKIN EVERY 72 HOURS?
     Route: 061
     Dates: start: 20140101
  5. FENTANYL TRANSDERMAL SYSTEM [Suspect]
     Active Substance: FENTANYL
     Indication: SPINAL STENOSIS
     Dosage: ?          QUANTITY:10 PATCHES?FREQUENCY: APPLY 1 PATCH ONTO THE SKIN EVERY 72 HOURS?
     Route: 061
     Dates: start: 20140101

REACTIONS (5)
  - Product use complaint [None]
  - Product colour issue [None]
  - Pain [None]
  - Product complaint [None]
  - Rash pruritic [None]

NARRATIVE: CASE EVENT DATE: 20210315
